FAERS Safety Report 21330669 (Version 2)
Quarter: 2022Q4

REPORT INFORMATION
  Report Type: Spontaneous
  Country: JP (occurrence: JP)
  Receive Date: 20220913
  Receipt Date: 20221024
  Transmission Date: 20230113
  Serious: Yes (Other)
  Sender: FDA-Public Use
  Company Number: JP-TAKEDA-2022TJP072524

PATIENT
  Age: 50 Year
  Sex: Female

DRUGS (1)
  1. ALUNBRIG [Suspect]
     Active Substance: BRIGATINIB
     Indication: Lung cancer metastatic
     Dosage: UNK
     Route: 048
     Dates: start: 202108

REACTIONS (1)
  - Pulmonary arterial hypertension [Recovered/Resolved]
